FAERS Safety Report 10176920 (Version 1)
Quarter: 2014Q2

REPORT INFORMATION
  Report Type: Spontaneous
  Country: MX (occurrence: MX)
  Receive Date: 20140516
  Receipt Date: 20140516
  Transmission Date: 20141212
  Serious: Yes (Other)
  Sender: FDA-Public Use
  Company Number: MX-PFIZER INC-2014131918

PATIENT
  Age: 54 Year
  Sex: Female

DRUGS (1)
  1. DETRUSITOL [Suspect]
     Dosage: 2 MG, UNK

REACTIONS (2)
  - Haematuria [Not Recovered/Not Resolved]
  - Dysuria [Recovered/Resolved]
